FAERS Safety Report 6309294-9 (Version None)
Quarter: 2009Q3

REPORT INFORMATION
  Report Type: 
  Country: None (occurrence: None)
  Receive Date: 20090811
  Receipt Date: 20090709
  Transmission Date: 20100115
  Serious: No
  Sender: FDA-Public Use
  Company Number: 1000007367

PATIENT
  Age: 62 Year
  Sex: Female

DRUGS (10)
  1. SAVELLA [Suspect]
     Indication: FIBROMYALGIA
     Dosage: 12.5 MG (12.5 MG, 1 IN 1 D), ORAL, 25 MG (12.5 MG, 2 IN 1 D), ORAL, 50 MG (25 MG, 1 IN 21 D), ORAL
     Route: 048
     Dates: start: 20090622, end: 20090622
  2. SAVELLA [Suspect]
     Indication: FIBROMYALGIA
     Dosage: 12.5 MG (12.5 MG, 1 IN 1 D), ORAL, 25 MG (12.5 MG, 2 IN 1 D), ORAL, 50 MG (25 MG, 1 IN 21 D), ORAL
     Route: 048
     Dates: start: 20090623, end: 20090624
  3. SAVELLA [Suspect]
     Indication: FIBROMYALGIA
     Dosage: 12.5 MG (12.5 MG, 1 IN 1 D), ORAL, 25 MG (12.5 MG, 2 IN 1 D), ORAL, 50 MG (25 MG, 1 IN 21 D), ORAL
     Route: 048
     Dates: start: 20090625, end: 20090628
  4. SAVELLA [Suspect]
     Indication: FIBROMYALGIA
     Dosage: 100 MG (50 MG, 2 IN 1 D), ORAL
     Route: 048
     Dates: start: 20090629, end: 20090630
  5. SAVELLA [Suspect]
     Indication: FIBROMYALGIA
     Dosage: 100 MG (20 MG, 2 IN 1 D), ORAL
     Route: 048
     Dates: start: 20090704, end: 20090708
  6. VITAMINS [Concomitant]
  7. ADVAIR HFA [Concomitant]
  8. NASACORT [Concomitant]
  9. FOLIC ACID [Concomitant]
  10. SYNTHROID [Concomitant]

REACTIONS (2)
  - CONSTIPATION [None]
  - VOMITING [None]
